FAERS Safety Report 10278299 (Version 1)
Quarter: 2014Q3

REPORT INFORMATION
  Report Type: Report from Study
  Country: TH (occurrence: TH)
  Receive Date: 20140704
  Receipt Date: 20140704
  Transmission Date: 20150326
  Serious: Yes (Hospitalization)
  Sender: FDA-Public Use
  Company Number: TH-SUN PHARMACEUTICAL INDUSTRIES LTD-2014SUN01514

PATIENT

DRUGS (1)
  1. TOPIRAMATE 100 MG TABLET [Suspect]
     Active Substance: TOPIRAMATE
     Indication: DRUG LEVEL
     Dosage: 100 MG, SINGLE DOSE
     Route: 048
     Dates: start: 20140620, end: 20140620

REACTIONS (3)
  - Panic reaction [None]
  - Convulsion [Recovered/Resolved]
  - Hyperventilation [None]

NARRATIVE: CASE EVENT DATE: 20140620
